FAERS Safety Report 6801058-2 (Version None)
Quarter: 2010Q2

REPORT INFORMATION
  Report Type: 
  Country: None (occurrence: None)
  Receive Date: 20100624
  Receipt Date: 20100609
  Transmission Date: 20101027
  Serious: Yes (Other)
  Sender: FDA-Public Use
  Company Number: 2010GW000445

PATIENT
  Sex: Female

DRUGS (1)
  1. ZYCLARA [Suspect]
     Indication: DRUG USE FOR UNKNOWN INDICATION
     Dosage: 3.75 PCT; TOP
     Route: 061

REACTIONS (2)
  - CARDIAC FAILURE CONGESTIVE [None]
  - FEELING ABNORMAL [None]
